FAERS Safety Report 11595797 (Version 1)
Quarter: 2015Q4

REPORT INFORMATION
  Report Type: Spontaneous
  Country: AT (occurrence: AT)
  Receive Date: 20151006
  Receipt Date: 20151006
  Transmission Date: 20160304
  Serious: Yes (Hospitalization, Other)
  Sender: FDA-Public Use
  Company Number: AT-ASTRAZENECA-2015SE95072

PATIENT
  Sex: Male

DRUGS (1)
  1. BRILIQUE [Suspect]
     Active Substance: TICAGRELOR
     Route: 048

REACTIONS (2)
  - Aortic valve stenosis [Recovered/Resolved]
  - Drug prescribing error [Unknown]
